FAERS Safety Report 8499730-4 (Version None)
Quarter: 2012Q3

REPORT INFORMATION
  Report Type: 
  Country: None (occurrence: None)
  Receive Date: 20120710
  Receipt Date: 20120629
  Transmission Date: 20120928
  Serious: Yes (Hospitalization)
  Sender: FDA-Public Use
  Company Number: US-SANOFI-AVENTIS-2012SA043788

PATIENT
  Age: 54 Year
  Sex: Male

DRUGS (5)
  1. ELOXATIN [Suspect]
     Route: 041
     Dates: start: 20120611, end: 20120611
  2. ELOXATIN [Suspect]
     Route: 041
     Dates: start: 20120521, end: 20120521
  3. ALOXI [Concomitant]
     Indication: PREMEDICATION
  4. ELOXATIN [Suspect]
     Indication: COLORECTAL CANCER
     Route: 041
     Dates: start: 20120507, end: 20120507
  5. DEXAMETHASONE [Concomitant]
     Indication: PREMEDICATION

REACTIONS (8)
  - HYPERHIDROSIS [None]
  - NAUSEA [None]
  - ELECTROCARDIOGRAM ST SEGMENT DEPRESSION [None]
  - VOMITING [None]
  - DEHYDRATION [None]
  - FLUSHING [None]
  - TACHYCARDIA [None]
  - RETCHING [None]
